FAERS Safety Report 23723393 (Version 1)
Quarter: 2024Q2

REPORT INFORMATION
  Report Type: Spontaneous
  Country: US (occurrence: US)
  Receive Date: 20240409
  Receipt Date: 20240409
  Transmission Date: 20240716
  Serious: No
  Sender: FDA-Public Use
  Company Number: US-PADAGIS-2024PAD00482

PATIENT

DRUGS (2)
  1. ESTRADIOL VAGINAL [Suspect]
     Active Substance: ESTRADIOL
     Indication: Atrophic vulvovaginitis
     Dosage: UNK, WEEKLY 3 TIMES (EVERY MWF)
     Route: 067
     Dates: start: 20240212, end: 20240322
  2. ESTRADIOL VAGINAL [Suspect]
     Active Substance: ESTRADIOL
     Dosage: PRASCO ESTRADIOL VAGINAL
     Route: 067
     Dates: end: 20240209

REACTIONS (2)
  - Vulvovaginal erythema [Unknown]
  - Vulvovaginal burning sensation [Unknown]
